FAERS Safety Report 4782160-6 (Version None)
Quarter: 2005Q3

REPORT INFORMATION
  Report Type: 
  Country: None (occurrence: None)
  Receive Date: 20050914
  Receipt Date: 20040811
  Transmission Date: 20060218
  Serious: Yes (Death)
  Sender: FDA-Public Use
  Company Number: 163-20785-04080254

PATIENT
  Age: 80 Year
  Sex: Male

DRUGS (8)
  1. THALOMID [Suspect]
     Indication: PROSTATE CANCER
     Dosage: 100 MG, QD, ORAL
     Route: 048
     Dates: start: 20040201, end: 20040101
  2. DARVOCET-N 100 [Concomitant]
  3. PROCRIT [Concomitant]
  4. MEGACE [Concomitant]
  5. COZAAR [Concomitant]
  6. IMURAN [Concomitant]
  7. PROTONIX [Concomitant]
  8. PHENERGAN [Concomitant]

REACTIONS (2)
  - DEATH [None]
  - DISEASE PROGRESSION [None]
